FAERS Safety Report 5475721-2 (Version None)
Quarter: 2007Q4

REPORT INFORMATION
  Report Type: 
  Country: None (occurrence: None)
  Receive Date: 20071001
  Receipt Date: 20070918
  Transmission Date: 20080405
  Serious: Yes (Hospitalization)
  Sender: FDA-Public Use
  Company Number: SP01582

PATIENT
  Age: 58 Year
  Sex: Female
  Weight: 89.8122 kg

DRUGS (9)
  1. OSMOPREP [Suspect]
     Indication: COLONOSCOPY
     Dosage: UNK, ORAL
     Route: 048
     Dates: start: 20070907, end: 20070907
  2. ASPIRIN [Concomitant]
  3. LEVOTHYROXINE SODIUM [Concomitant]
  4. CALCITRIOL [Concomitant]
  5. HYZAAR [Concomitant]
  6. ACARBOSE [Concomitant]
  7. PREGABALIN [Concomitant]
  8. ESCITALOPRAM OXALATE [Concomitant]
  9. LEVETIRACETAM [Concomitant]

REACTIONS (4)
  - BLISTER [None]
  - LOSS OF CONSCIOUSNESS [None]
  - RENAL IMPAIRMENT [None]
  - URTICARIA [None]
